FAERS Safety Report 5471780-1 (Version None)
Quarter: 2007Q3

REPORT INFORMATION
  Report Type: 
  Country: None (occurrence: None)
  Receive Date: 20070928
  Receipt Date: 20070518
  Transmission Date: 20080115
  Serious: No
  Sender: FDA-Public Use
  Company Number: US-BRISTOL-MYERS SQUIBB COMPANY-13787072

PATIENT
  Age: 65 Year
  Sex: Female

DRUGS (6)
  1. DEFINITY [Suspect]
     Indication: ECHOCARDIOGRAM
     Route: 040
  2. ALBUTEROL [Concomitant]
  3. PRILOSEC [Concomitant]
  4. AMARYL [Concomitant]
  5. TOPROL-XL [Concomitant]
  6. ZOLOFT [Concomitant]

REACTIONS (2)
  - HEADACHE [None]
  - PAIN [None]
